FAERS Safety Report 24602976 (Version 1)
Quarter: 2024Q4

REPORT INFORMATION
  Report Type: Spontaneous
  Country: FR (occurrence: FR)
  Receive Date: 20241111
  Receipt Date: 20241111
  Transmission Date: 20250114
  Serious: Yes (Hospitalization, Other)
  Sender: PFIZER
  Company Number: None

PATIENT
  Age: 67 Year
  Sex: Female
  Weight: 37 kg

DRUGS (18)
  1. SPIRONOLACTONE [Interacting]
     Active Substance: SPIRONOLACTONE
     Indication: Cardiac failure
     Dosage: 12.5 MG, 1X/DAY
     Route: 048
     Dates: end: 20240924
  2. ENTRESTO [Interacting]
     Active Substance: SACUBITRIL\VALSARTAN
     Indication: Cardiac failure
     Dosage: 1 DF, 1X/DAY
     Route: 048
     Dates: end: 20240924
  3. BISOPROLOL FUMARATE [Interacting]
     Active Substance: BISOPROLOL FUMARATE
     Indication: Cardiac failure
     Dosage: 2.5 MG, 1X/DAY
     Route: 048
     Dates: end: 20240924
  4. FUROSEMIDE [Interacting]
     Active Substance: FUROSEMIDE
     Indication: Cardiac failure
     Dosage: 20 MG, 1X/DAY
     Route: 048
     Dates: end: 20240924
  5. DAPAGLIFLOZIN [Interacting]
     Active Substance: DAPAGLIFLOZIN
     Indication: Cardiac failure
     Dosage: 10 MG, 1X/DAY
     Route: 048
     Dates: end: 20240924
  6. SKENAN [Interacting]
     Active Substance: MORPHINE SULFATE
     Indication: Pain
     Dosage: 30 MG, 1X/DAY (EXTENDED RELEASE MICROGRANULES IN CAPSULE)
     Route: 048
     Dates: end: 20240924
  7. GABAPENTIN [Interacting]
     Active Substance: GABAPENTIN
     Indication: Pain
     Dosage: 100 MG EVERY 8 HOURS
     Route: 048
     Dates: end: 20240924
  8. CLOMIPRAMINE HYDROCHLORIDE [Interacting]
     Active Substance: CLOMIPRAMINE HYDROCHLORIDE
     Indication: Pain
     Dosage: 30 MG, 1X/DAY
     Route: 048
     Dates: end: 20240924
  9. ALPRAZOLAM [Interacting]
     Active Substance: ALPRAZOLAM
     Indication: Anxiety
     Dosage: 0.5 MG, 1X/DAY
     Route: 048
     Dates: end: 20240924
  10. POTASSIUM CHLORIDE [Interacting]
     Active Substance: POTASSIUM CHLORIDE
     Indication: Hypokalaemia
     Dosage: 1 DF, 1X/DAY
     Route: 048
     Dates: end: 20240924
  11. METOCLOPRAMIDE HYDROCHLORIDE [Concomitant]
     Active Substance: METOCLOPRAMIDE HYDROCHLORIDE
     Indication: Nausea
     Dosage: 10 MG EVERY 8 HOURS
     Route: 048
     Dates: end: 20240924
  12. VOGALENE [Concomitant]
     Active Substance: METOPIMAZINE
     Indication: Nausea
     Dosage: 1 DF EVERY 8 HOURS
     Route: 048
     Dates: end: 20240924
  13. ESOMEPRAZOLE MAGNESIUM [Concomitant]
     Active Substance: ESOMEPRAZOLE MAGNESIUM
     Indication: Gastrooesophageal reflux disease
     Dosage: 40 MG, 1X/DAY
     Route: 048
     Dates: end: 20240924
  14. GAVISCON [ALUMINIUM HYDROXIDE;CALCIUM CARBONATE;SODIUM ALGINATE;SODIUM [Concomitant]
     Indication: Gastrooesophageal reflux disease
     Dosage: 1 DF
     Route: 048
  15. LACTULOSE\PARAFFIN [Concomitant]
     Active Substance: LACTULOSE\PARAFFIN
     Indication: Constipation prophylaxis
     Dosage: 2 DF EVERY 8 HOURS (ORAL JELLY IN TUBE)
     Route: 048
  16. NORMACOL [SODIUM PHOSPHATE DIBASIC;SODIUM PHOSPHATE DIBASIC DODECAHYDR [Concomitant]
     Indication: Constipation prophylaxis
     Dosage: 1 DF
     Route: 048
  17. CLOPIDOGREL BESILATE [Concomitant]
     Active Substance: CLOPIDOGREL BESILATE
     Indication: Cardiovascular event prophylaxis
     Dosage: 75 MG, 1X/DAY
     Route: 048
     Dates: end: 20240924
  18. OROCAL VITAMINE D3 [CALCIUM CARBONATE;COLECALCIFEROL] [Concomitant]
     Indication: Osteoporosis
     Dosage: 1 DF, 1X/DAY (500 MG/400 UI, TABLET FOR SUCKING)
     Route: 048
     Dates: end: 20240924

REACTIONS (7)
  - Acute respiratory distress syndrome [Recovered/Resolved]
  - Acute kidney injury [Recovered/Resolved]
  - Hyperkalaemia [Recovered/Resolved]
  - Altered state of consciousness [Recovered/Resolved]
  - Drug interaction [Recovered/Resolved]
  - Dehydration [Recovered/Resolved]
  - Fall [Recovered/Resolved]

NARRATIVE: CASE EVENT DATE: 20240924
